FAERS Safety Report 25573987 (Version 1)
Quarter: 2025Q3

REPORT INFORMATION
  Report Type: Spontaneous
  Country: CA (occurrence: CA)
  Receive Date: 20250717
  Receipt Date: 20250717
  Transmission Date: 20251020
  Serious: Yes (Death, Life-Threatening, Hospitalization, Disabling, Congenital Anomaly, Other)
  Sender: ABBVIE
  Company Number: CA-ABBVIE-6375974

PATIENT
  Age: 43 Year
  Sex: Female

DRUGS (1)
  1. ADALIMUMAB [Suspect]
     Active Substance: ADALIMUMAB
     Indication: Product used for unknown indication
     Route: 058

REACTIONS (48)
  - Decreased appetite [Fatal]
  - Ear pain [Fatal]
  - Exostosis [Fatal]
  - Contraindicated product administered [Fatal]
  - Dyspnoea [Fatal]
  - Hepatic cirrhosis [Fatal]
  - Condition aggravated [Fatal]
  - C-reactive protein abnormal [Fatal]
  - C-reactive protein increased [Fatal]
  - Hepatic enzyme increased [Fatal]
  - Confusional state [Fatal]
  - Crohn^s disease [Fatal]
  - Contusion [Fatal]
  - Abdominal pain upper [Fatal]
  - Paraesthesia [Fatal]
  - Taste disorder [Fatal]
  - Treatment failure [Fatal]
  - Product use issue [Fatal]
  - Drug hypersensitivity [Fatal]
  - Duodenal ulcer perforation [Fatal]
  - Hypercholesterolaemia [Fatal]
  - Product quality issue [Fatal]
  - Hypertension [Fatal]
  - Ill-defined disorder [Fatal]
  - Chest pain [Fatal]
  - Deep vein thrombosis postoperative [Fatal]
  - Delirium [Fatal]
  - Depression [Fatal]
  - Blepharospasm [Fatal]
  - Epilepsy [Fatal]
  - Gastrooesophageal reflux disease [Fatal]
  - Memory impairment [Fatal]
  - Impaired healing [Fatal]
  - Drug ineffective [Fatal]
  - Migraine [Fatal]
  - Product use in unapproved indication [Fatal]
  - Off label use [Fatal]
  - Weight increased [Fatal]
  - Wheezing [Fatal]
  - Wound [Fatal]
  - Wound infection [Fatal]
  - X-ray abnormal [Fatal]
  - Prescribed underdose [Fatal]
  - Prescribed overdose [Fatal]
  - Therapeutic product effect decreased [Fatal]
  - Therapeutic product effect incomplete [Fatal]
  - Hypoaesthesia [Fatal]
  - Drug intolerance [Fatal]
